FAERS Safety Report 5330576-1 (Version None)
Quarter: 2007Q2

REPORT INFORMATION
  Report Type: 
  Country: None (occurrence: None)
  Receive Date: 20070516
  Receipt Date: 20070514
  Transmission Date: 20071010
  Serious: Yes (Hospitalization)
  Sender: FDA-Public Use
  Company Number: 2007SP009187

PATIENT
  Age: 29 Year
  Sex: Female

DRUGS (2)
  1. CELESTONE [Suspect]
     Indication: DRUG USE FOR UNKNOWN INDICATION
     Dosage: 6 MG;QD;IV
     Route: 042
     Dates: start: 20070419, end: 20070419
  2. AUGMENTIN '200' [Suspect]
     Indication: DRUG USE FOR UNKNOWN INDICATION
     Dosage: 2 GM;QD;IV
     Route: 042
     Dates: start: 20070419, end: 20070419

REACTIONS (3)
  - ERYTHEMA [None]
  - TACHYCARDIA [None]
  - VASODILATATION [None]
